FAERS Safety Report 5044014-X (Version None)
Quarter: 2006Q2

REPORT INFORMATION
  Report Type: 
  Country: None (occurrence: None)
  Receive Date: 20060601
  Receipt Date: 20060221
  Transmission Date: 20061013
  Serious: No
  Sender: FDA-Public Use
  Company Number: 2006PV009004

PATIENT
  Sex: Male

DRUGS (5)
  1. BYETTA [Suspect]
     Indication: DRUG USE FOR UNKNOWN INDICATION
     Dosage: 5 MCG SC
     Route: 058
     Dates: start: 20060221
  2. GLUCOPHAGE [Concomitant]
  3. GLIPIZIDE [Concomitant]
  4. PLAVIX [Concomitant]
  5. ASPIRIN [Concomitant]

REACTIONS (2)
  - INJECTION SITE ERYTHEMA [None]
  - INJECTION SITE HAEMORRHAGE [None]
